FAERS Safety Report 8238502-2 (Version None)
Quarter: 2012Q1

REPORT INFORMATION
  Report Type: 
  Country: None (occurrence: None)
  Receive Date: 20120327
  Receipt Date: 20120322
  Transmission Date: 20120608
  Serious: No
  Sender: FDA-Public Use
  Company Number: US-PFIZER INC-2012075170

PATIENT
  Sex: Female

DRUGS (3)
  1. CHANTIX [Suspect]
     Dosage: UNK
     Route: 048
     Dates: start: 20110101, end: 20110501
  2. CHANTIX [Suspect]
     Indication: SMOKING CESSATION THERAPY
     Dosage: 0.5 MG, 1X/DAY
     Route: 048
     Dates: start: 20110401, end: 20110101
  3. CHANTIX [Suspect]
     Dosage: UNK
     Route: 048
     Dates: start: 20120301

REACTIONS (4)
  - WEIGHT INCREASED [None]
  - ANXIETY [None]
  - DYSGEUSIA [None]
  - THERAPEUTIC RESPONSE UNEXPECTED [None]
